FAERS Safety Report 11544022 (Version 1)
Quarter: 2015Q3

REPORT INFORMATION
  Report Type: Spontaneous
  Country: US (occurrence: US)
  Receive Date: 20150924
  Receipt Date: 20150924
  Transmission Date: 20151125
  Serious: No
  Sender: FDA-Public Use
  Company Number: US-ASTRAZENECA-2015SE89160

PATIENT
  Age: 20974 Day
  Sex: Female
  Weight: 81.6 kg

DRUGS (5)
  1. PROVENTIL [Concomitant]
     Active Substance: ALBUTEROL
     Indication: PROPHYLAXIS
     Dates: start: 2013
  2. FLOVENT [Concomitant]
     Active Substance: FLUTICASONE PROPIONATE
     Indication: PROPHYLAXIS
  3. ZYRTEC [Concomitant]
     Active Substance: CETIRIZINE HYDROCHLORIDE
  4. SYNTHROID [Concomitant]
     Active Substance: LEVOTHYROXINE SODIUM
     Indication: THYROID DISORDER
  5. RHINOCORT AQUA [Suspect]
     Active Substance: BUDESONIDE
     Indication: POLYP
     Route: 045
     Dates: start: 1999

REACTIONS (7)
  - Asthma [Unknown]
  - Alopecia [Unknown]
  - Off label use [Unknown]
  - Hypersensitivity [Unknown]
  - Drug dose omission [Unknown]
  - Nasal discomfort [Unknown]
  - Product use issue [Unknown]

NARRATIVE: CASE EVENT DATE: 20150101
